FAERS Safety Report 20958377 (Version 1)
Quarter: 2022Q2

REPORT INFORMATION
  Report Type: Spontaneous
  Country: US (occurrence: US)
  Receive Date: 20220614
  Receipt Date: 20220614
  Transmission Date: 20220721
  Serious: Yes (Hospitalization, Other)
  Sender: FDA-Public Use
  Company Number: US-FreseniusKabi-FK202208001

PATIENT
  Age: 66 Year
  Sex: Male
  Weight: 100 kg

DRUGS (3)
  1. PROPOFOL [Suspect]
     Active Substance: PROPOFOL
     Indication: Product used for unknown indication
     Route: 065
     Dates: start: 202003, end: 202003
  2. PROPOFOL [Suspect]
     Active Substance: PROPOFOL
     Route: 065
     Dates: start: 202007, end: 202007
  3. DIPRIVAN [Suspect]
     Active Substance: PROPOFOL
     Indication: Product used for unknown indication
     Route: 065

REACTIONS (6)
  - Hypoxia [Recovered/Resolved]
  - Disorientation [Recovered/Resolved]
  - Hypersensitivity [Unknown]
  - Malaise [Unknown]
  - Bronchospasm [Unknown]
  - Pulmonary function test decreased [Recovering/Resolving]

NARRATIVE: CASE EVENT DATE: 20200301
